FAERS Safety Report 18154322 (Version 1)
Quarter: 2020Q3

REPORT INFORMATION
  Report Type: Other
  Country: JP (occurrence: JP)
  Receive Date: 20200817
  Receipt Date: 20200817
  Transmission Date: 20201103
  Serious: Yes (Death, Hospitalization, Other)
  Sender: FDA-Public Use
  Company Number: JP-HEALTHCARE PHARMACEUTICALS LTD.-2088673

PATIENT
  Age: 67 Year
  Sex: Female

DRUGS (5)
  1. RITUXIMAB. [Suspect]
     Active Substance: RITUXIMAB
     Route: 065
  2. CYCLOPHOSPHAMIDE. [Suspect]
     Active Substance: CYCLOPHOSPHAMIDE
     Route: 065
  3. PREDNISOLONE. [Suspect]
     Active Substance: PREDNISOLONE
     Route: 065
  4. VINCRISTINE SULFATE. [Suspect]
     Active Substance: VINCRISTINE SULFATE
     Route: 065
  5. DOXORUBICIN HYDROCHLORIDE. [Suspect]
     Active Substance: DOXORUBICIN HYDROCHLORIDE
     Indication: NON-HODGKIN^S LYMPHOMA
     Route: 065

REACTIONS (11)
  - Vomiting [Unknown]
  - Herpes zoster meningoencephalitis [Fatal]
  - Nausea [Unknown]
  - Blister [Unknown]
  - Depressed level of consciousness [Unknown]
  - Coma [Unknown]
  - Delirium [Unknown]
  - Brain oedema [Unknown]
  - Brain herniation [Unknown]
  - Cheyne-Stokes respiration [Unknown]
  - Rash [Unknown]
